FAERS Safety Report 5726981-1 (Version None)
Quarter: 2008Q2

REPORT INFORMATION
  Report Type: 
  Country: None (occurrence: None)
  Receive Date: 20080503
  Receipt Date: 20080421
  Transmission Date: 20081010
  Serious: Yes (Death, Life-Threatening, Hospitalization, Disabling, Other)
  Sender: FDA-Public Use
  Company Number: DE-BRISTOL-MYERS SQUIBB COMPANY-14132641

PATIENT
  Age: 62 Year
  Sex: Female
  Weight: 64 kg

DRUGS (6)
  1. TAXOL [Suspect]
     Indication: BREAST CANCER
     Dates: start: 20080312, end: 20080319
  2. CYCLOPHOSPHAMIDE [Suspect]
     Indication: BREAST CANCER
     Dosage: 600MG/M2
     Dates: start: 20080109, end: 20080227
  3. XELODA [Suspect]
     Indication: BREAST CANCER
     Dates: start: 20080312, end: 20080323
  4. EPIRUBICIN [Suspect]
     Indication: BREAST CANCER
     Dosage: 112.5MG/M2
     Dates: start: 20080109, end: 20080227
  5. DARBEPOETIN ALFA [Concomitant]
  6. TPN [Concomitant]
     Dates: start: 20080109

REACTIONS (10)
  - ANAEMIA [None]
  - DISSEMINATED INTRAVASCULAR COAGULATION [None]
  - LIVER FUNCTION TEST ABNORMAL [None]
  - MUCOSAL INFLAMMATION [None]
  - MULTI-ORGAN FAILURE [None]
  - NEUTROPENIA [None]
  - PNEUMONIA [None]
  - SEPSIS [None]
  - STOMATITIS [None]
  - THROMBOCYTOPENIA [None]
